FAERS Safety Report 16544957 (Version 1)
Quarter: 2019Q3

REPORT INFORMATION
  Report Type: Report from Study
  Country: IT (occurrence: IT)
  Receive Date: 20190709
  Receipt Date: 20190709
  Transmission Date: 20191004
  Serious: Yes (Other)
  Sender: FDA-Public Use
  Company Number: IT-PFIZER INC-2019289321

PATIENT
  Age: 41 Year
  Sex: Female

DRUGS (1)
  1. MEDROL [Suspect]
     Active Substance: METHYLPREDNISOLONE
     Indication: INTENTIONAL SELF-INJURY
     Dosage: 4 DF, SINGLE (TOTAL)
     Route: 048
     Dates: start: 20190528, end: 20190528

REACTIONS (2)
  - Drug abuse [Recovering/Resolving]
  - Malaise [Recovering/Resolving]

NARRATIVE: CASE EVENT DATE: 20190528
